FAERS Safety Report 14995257 (Version 1)
Quarter: 2018Q2

REPORT INFORMATION
  Report Type: Spontaneous
  Country: US (occurrence: US)
  Receive Date: 20180521
  Receipt Date: 20180521
  Transmission Date: 20180711
  Serious: Yes (Life-Threatening, Disabling, Other)
  Sender: FDA-Public Use
  Company Number: None

PATIENT
  Age: 47 Year
  Sex: Male
  Weight: 96.75 kg

DRUGS (1)
  1. CHANTIX [Suspect]
     Active Substance: VARENICLINE TARTRATE
     Indication: SMOKING CESSATION THERAPY
     Route: 048

REACTIONS (10)
  - Panic attack [None]
  - Depression [None]
  - Loss of personal independence in daily activities [None]
  - Sleep disorder [None]
  - Quality of life decreased [None]
  - Crying [None]
  - Fatigue [None]
  - Poisoning [None]
  - Anxiety [None]
  - Post-traumatic stress disorder [None]

NARRATIVE: CASE EVENT DATE: 20180215
